FAERS Safety Report 6355066-9 (Version None)
Quarter: 2009Q3

REPORT INFORMATION
  Report Type: 
  Country: None (occurrence: None)
  Receive Date: 20090914
  Receipt Date: 20090819
  Transmission Date: 20100115
  Serious: Yes (Other)
  Sender: FDA-Public Use
  Company Number: US-BAYER-200913193BCC

PATIENT
  Sex: Female

DRUGS (4)
  1. ALEVE [Suspect]
     Indication: ARTHRITIS
     Route: 048
  2. ALEVE (CAPLET) [Suspect]
     Indication: ARTHRITIS
     Route: 048
  3. ALEVE [Suspect]
     Indication: ARTHRITIS
     Route: 048
  4. ASPIRIN [Suspect]
     Indication: PAIN
     Dosage: CONSUMER TOOK 1 OR 2 CAPLETS
     Route: 048

REACTIONS (4)
  - MOUTH HAEMORRHAGE [None]
  - NAUSEA [None]
  - OCULAR DISCOMFORT [None]
  - RETINAL HAEMORRHAGE [None]
